FAERS Safety Report 5094207-0 (Version None)
Quarter: 2006Q3

REPORT INFORMATION
  Report Type: 
  Country: None (occurrence: None)
  Receive Date: 20060831
  Receipt Date: 20060825
  Transmission Date: 20061208
  Serious: Yes (Hospitalization)
  Sender: FDA-Public Use
  Company Number: PHRM2006FR02411

PATIENT
  Age: 72 Year
  Sex: Female
  Weight: 80 kg

DRUGS (6)
  1. ZOMETA [Suspect]
     Indication: MULTIPLE MYELOMA
     Dosage: 4 MG, QMO
     Route: 042
     Dates: start: 20051011
  2. ENDOXAN [Suspect]
     Indication: MULTIPLE MYELOMA
     Dosage: 1 G, QD
     Route: 042
     Dates: start: 20051013
  3. DEXAMETHASONE [Suspect]
     Indication: MULTIPLE MYELOMA
     Dosage: 40 MG, QD
     Route: 048
     Dates: start: 20051013
  4. MELPHALAN [Suspect]
     Dosage: 2 MG, UNK
     Route: 048
     Dates: start: 20051013, end: 20051013
  5. MELPHALAN [Suspect]
     Dosage: 4 MG, QD
     Route: 048
     Dates: start: 20051014, end: 20051014
  6. MELPHALAN [Suspect]
     Dosage: 2 MG, QD
     Route: 048
     Dates: start: 20051016, end: 20051016

REACTIONS (11)
  - BACK PAIN [None]
  - BLOOD CULTURE POSITIVE [None]
  - C-REACTIVE PROTEIN INCREASED [None]
  - CULTURE URINE POSITIVE [None]
  - INTERNATIONAL NORMALISED RATIO INCREASED [None]
  - KLEBSIELLA INFECTION [None]
  - NEUTROPENIA [None]
  - PANCYTOPENIA [None]
  - RED BLOOD CELL COUNT DECREASED [None]
  - THROMBOCYTOPENIA [None]
  - WHITE BLOOD CELL COUNT DECREASED [None]
